FAERS Safety Report 20884769 (Version 1)
Quarter: 2022Q2

REPORT INFORMATION
  Report Type: Spontaneous
  Country: ES (occurrence: ES)
  Receive Date: 20220527
  Receipt Date: 20220527
  Transmission Date: 20220721
  Serious: Yes (Other)
  Sender: FDA-Public Use
  Company Number: ES-CHIESI-2022CHF02582

PATIENT
  Age: 74 Year
  Sex: Male

DRUGS (4)
  1. CANGRELOR TETRASODIUM [Suspect]
     Active Substance: CANGRELOR TETRASODIUM
     Indication: Product used for unknown indication
     Dosage: UNK
     Route: 042
  2. CANGRELOR TETRASODIUM [Suspect]
     Active Substance: CANGRELOR TETRASODIUM
     Dosage: UNK
     Route: 042
  3. CANGRELOR TETRASODIUM [Suspect]
     Active Substance: CANGRELOR TETRASODIUM
     Dosage: UNK
     Route: 042
  4. ASPIRIN [Concomitant]
     Active Substance: ASPIRIN
     Indication: Product used for unknown indication
     Dosage: UNK

REACTIONS (4)
  - Thrombosis [Unknown]
  - Post procedural haemorrhage [Unknown]
  - Off label use [Unknown]
  - Off label use [Unknown]
